FAERS Safety Report 10009790 (Version 2)
Quarter: 2014Q1

REPORT INFORMATION
  Report Type: Spontaneous
  Country: US (occurrence: US)
  Receive Date: 20140312
  Receipt Date: 20140312
  Transmission Date: 20141002
  Serious: No
  Sender: FDA-Public Use
  Company Number: US-INCYTE CORPORATION-2012IN002378

PATIENT
  Age: 84 Year
  Sex: Female

DRUGS (15)
  1. JAKAFI [Suspect]
     Indication: MYELOFIBROSIS
     Dosage: 15 MG, QD
     Route: 048
  2. ZOCOR [Concomitant]
     Dosage: 20 MG, UNK
  3. LASIX [Concomitant]
     Dosage: 40 MG, UNK
  4. CALCITRIOL [Concomitant]
     Dosage: 1 MCG/ML
  5. COUMADIN [Concomitant]
     Dosage: 2 MG, UNK
  6. LANTUS [Concomitant]
     Dosage: 100 ML, UNK
  7. LISINOPRIL [Concomitant]
     Dosage: 5 MG, UNK
  8. ASACOL [Concomitant]
     Dosage: 800 MG, UNK
  9. NOVOLOG [Concomitant]
     Dosage: 100 ML, UNK
  10. PRILOSEC [Concomitant]
     Dosage: 20 MG, UNK
  11. SPIRONOLACTONE [Concomitant]
     Dosage: 25 MG, UNK
  12. FISH OIL [Concomitant]
  13. MULTIVITAMIN [Concomitant]
  14. LEVOXYL [Concomitant]
     Dosage: 100 MCG, UNK
  15. VITAMIN D3 [Concomitant]
     Dosage: 10000 IU, UNK

REACTIONS (5)
  - Rash pruritic [Unknown]
  - Oedema peripheral [Unknown]
  - Abdominal distension [Unknown]
  - Condition aggravated [Unknown]
  - Blood iron decreased [Unknown]
